FAERS Safety Report 10615726 (Version 4)
Quarter: 2014Q4

REPORT INFORMATION
  Report Type: Spontaneous
  Country: US (occurrence: US)
  Receive Date: 20141201
  Receipt Date: 20141218
  Transmission Date: 20150529
  Serious: Yes (Other)
  Sender: FDA-Public Use
  Company Number: US-BAYER-2014-172310

PATIENT
  Age: 31 Year
  Sex: Female
  Weight: 93.42 kg

DRUGS (1)
  1. MIRENA [Suspect]
     Active Substance: LEVONORGESTREL
     Indication: CONTRACEPTION
     Dosage: 20 MCG/24HR, CONT
     Route: 015
     Dates: start: 20131004, end: 20141118

REACTIONS (5)
  - Device difficult to use [Unknown]
  - Complication of device removal [Unknown]
  - Product use issue [Unknown]
  - Device breakage [Unknown]
  - Uterine perforation [Unknown]

NARRATIVE: CASE EVENT DATE: 20141118
